FAERS Safety Report 7432139-0 (Version None)
Quarter: 2011Q2

REPORT INFORMATION
  Report Type: 
  Country: None (occurrence: None)
  Receive Date: 20110422
  Receipt Date: 20110406
  Transmission Date: 20111010
  Serious: No
  Sender: FDA-Public Use
  Company Number: US-B.I. PHARMACEUTICALS,INC./RIDGEFIELD-2011-BP-10155BP

PATIENT
  Age: 62 Year
  Sex: Female

DRUGS (5)
  1. PRADAXA [Suspect]
     Indication: ATRIAL FIBRILLATION
     Dosage: 300 MG
     Route: 048
     Dates: start: 20110405
  2. AMOXICILLIN [Concomitant]
     Indication: RENAL STONE REMOVAL
     Dates: start: 20110228
  3. DIGOXIN [Concomitant]
     Indication: ATRIAL FIBRILLATION
  4. LORAZEPAM [Concomitant]
     Indication: ANXIETY
  5. AMARYL [Concomitant]
     Indication: DIABETES MELLITUS

REACTIONS (4)
  - ABNORMAL FAECES [None]
  - ABDOMINAL PAIN [None]
  - DIARRHOEA [None]
  - FLATULENCE [None]
